FAERS Safety Report 14901359 (Version 2)
Quarter: 2018Q2

REPORT INFORMATION
  Report Type: Spontaneous
  Country: BR (occurrence: BR)
  Receive Date: 20180516
  Receipt Date: 20180607
  Transmission Date: 20180711
  Serious: Yes (Other)
  Sender: FDA-Public Use
  Company Number: BR-SA-2018SA135210

PATIENT
  Age: 46 Year
  Sex: Female

DRUGS (6)
  1. THYMOGLOBULINE [Suspect]
     Active Substance: LAPINE T-LYMPHOCYTE IMMUNE GLOBULIN
     Indication: IMMUNOSUPPRESSION
     Dosage: 225 MG,QD
     Route: 042
     Dates: start: 20180429, end: 20180430
  2. RANITIDINE. [Concomitant]
     Active Substance: RANITIDINE
     Indication: PROPHYLAXIS AGAINST GASTROINTESTINAL ULCER
     Dosage: 100 MG,BID
     Route: 042
     Dates: start: 20180429
  3. PHENOBARBITAL. [Concomitant]
     Active Substance: PHENOBARBITAL
     Indication: ANTICONVULSANT DRUG LEVEL
     Dosage: 100 MG,QD
     Route: 048
     Dates: start: 20180429
  4. HYDROCORTISONE. [Concomitant]
     Active Substance: HYDROCORTISONE
     Indication: PROPHYLAXIS
     Dosage: 300 MG,QD
     Route: 042
     Dates: start: 20180429, end: 20180429
  5. METAMIZOLE SODIUM [Concomitant]
     Active Substance: METAMIZOLE SODIUM
     Indication: PROPHYLAXIS
     Dosage: 1000 MG,QD
     Route: 042
     Dates: start: 20180429, end: 20180501
  6. CEFAZOLIN [Concomitant]
     Active Substance: CEFAZOLIN
     Indication: PROPHYLAXIS
     Dosage: 1 G,TID
     Route: 042
     Dates: start: 20180429, end: 20180430

REACTIONS (10)
  - Tremor [Unknown]
  - Tachypnoea [Unknown]
  - Hypotension [Recovered/Resolved]
  - Pyrexia [Unknown]
  - Hypertension [Unknown]
  - Nausea [Unknown]
  - Oedema [Recovered/Resolved]
  - Vomiting [Unknown]
  - Pruritus [Unknown]
  - Chest pain [Recovered/Resolved]

NARRATIVE: CASE EVENT DATE: 20180429
